FAERS Safety Report 10619560 (Version 4)
Quarter: 2015Q2

REPORT INFORMATION
  Report Type: Spontaneous
  Country: US (occurrence: US)
  Receive Date: 20141202
  Receipt Date: 20150508
  Transmission Date: 20150821
  Serious: Yes (Other)
  Sender: FDA-Public Use
  Company Number: US-PFIZER INC-2014329513

PATIENT
  Age: 69 Year
  Sex: Female
  Weight: 68 kg

DRUGS (14)
  1. DULOXETINE [Concomitant]
     Active Substance: DULOXETINE
     Indication: FEELING OF RELAXATION
  2. PREDNISONE. [Concomitant]
     Active Substance: PREDNISONE
     Dosage: 10 MG, 2X/DAY
     Dates: start: 201410
  3. VITAMIN B12 [Concomitant]
     Active Substance: CYANOCOBALAMIN
     Indication: BLOOD DISORDER
     Dosage: 1000 MG, 2X/DAY
     Route: 048
  4. OMEPRAZOLE MAGNESIUM. [Concomitant]
     Active Substance: OMEPRAZOLE MAGNESIUM
     Indication: GASTROOESOPHAGEAL REFLUX DISEASE
     Dosage: 20.6 MG, DAILY
     Route: 048
  5. FOLIC ACID. [Concomitant]
     Active Substance: FOLIC ACID
     Indication: RHEUMATOID ARTHRITIS
     Dosage: 1MG TABLET ONCE A DAY AS NEEDED
     Route: 048
  6. CALCIUM CITRATE PLUS D3 [Concomitant]
     Indication: OSTEOPOROSIS
     Dosage: 2 DF, DAILY
     Route: 048
  7. IBUPROFEN. [Concomitant]
     Active Substance: IBUPROFEN
     Indication: PAIN
     Dosage: 9 IBUPROFEN, DAILY
  8. DULOXETINE [Concomitant]
     Active Substance: DULOXETINE
     Indication: MYALGIA
     Dosage: 20 MG, 1X/DAY AS NEEDED BY MUSCLE PAIN
  9. DULOXETINE [Concomitant]
     Active Substance: DULOXETINE
     Indication: SLEEP DISORDER
  10. XELJANZ [Suspect]
     Active Substance: TOFACITINIB CITRATE
     Indication: RHEUMATOID ARTHRITIS
     Dosage: 5 MG, 2X/DAY
     Route: 048
     Dates: start: 2014
  11. PREDNISONE. [Concomitant]
     Active Substance: PREDNISONE
     Indication: RHEUMATOID ARTHRITIS
     Dosage: 10 MG, 2X/DAY
     Route: 048
  12. PREDNISONE. [Concomitant]
     Active Substance: PREDNISONE
     Dosage: UNK
  13. TRIAMTERENE HCTZ 37.5/25 [Concomitant]
     Indication: JOINT EFFUSION
     Dosage: (STRENGTH TRIAMTERENE 37.5 MG/HYDROCHLOROTHIAZIDE 25 MG), DAILY
     Route: 048
  14. PREDNISONE. [Concomitant]
     Active Substance: PREDNISONE
     Indication: PAIN
     Dosage: 1 MG, 2X/DAY
     Route: 048

REACTIONS (6)
  - Pain in extremity [Recovering/Resolving]
  - Stress fracture [Recovering/Resolving]
  - Blood cholesterol increased [Unknown]
  - Peripheral swelling [Unknown]
  - Joint swelling [Unknown]
  - Hypertension [Unknown]

NARRATIVE: CASE EVENT DATE: 2014
